FAERS Safety Report 12435002 (Version 1)
Quarter: 2016Q2

REPORT INFORMATION
  Report Type: Spontaneous
  Country: US (occurrence: US)
  Receive Date: 20160603
  Receipt Date: 20160603
  Transmission Date: 20160815
  Serious: No
  Sender: FDA-Public Use
  Company Number: US-ROCHE-1645944

PATIENT
  Sex: Male

DRUGS (10)
  1. OMEPRAZOL [Concomitant]
     Active Substance: OMEPRAZOLE
     Dosage: 1 CAPSULE ORALLY ONCE IN A DAY
     Route: 048
  2. SKELAXIN [Suspect]
     Active Substance: METAXALONE
     Indication: PRODUCT USED FOR UNKNOWN INDICATION
     Dosage: 1 TABLET ORALLY THREE TIMES A DAY.
     Route: 048
  3. FLONASE (UNITED STATES) [Concomitant]
     Dosage: 50 MCG/ACT SUSPENSION, 1 SPRAY IN EACH NOSTRIL NASALLY ONCE IN A DAY
     Route: 045
  4. DOXAZOSIN MESYLATE. [Concomitant]
     Active Substance: DOXAZOSIN MESYLATE
     Dosage: 1 TAB ORALLY ONCE IN A DAY
     Route: 048
  5. TALACEN [Concomitant]
     Active Substance: ACETAMINOPHEN\PENTAZOCINE HYDROCHLORIDE
  6. SUPREP BOWEL PREP [Concomitant]
     Active Substance: MAGNESIUM SULFATE\POTASSIUM SULFATE\SODIUM SULFATE
     Dosage: AS DIRECTED
     Route: 048
     Dates: start: 20150211
  7. LISINOPRIL. [Concomitant]
     Active Substance: LISINOPRIL
     Dosage: 1 TAB ORALLY ONCE IN A DAY
     Route: 048
  8. KLONOPIN [Suspect]
     Active Substance: CLONAZEPAM
     Indication: PRODUCT USED FOR UNKNOWN INDICATION
     Route: 065
  9. VIAGRA [Suspect]
     Active Substance: SILDENAFIL CITRATE
     Indication: PRODUCT USED FOR UNKNOWN INDICATION
     Route: 065
  10. SONATA [Suspect]
     Active Substance: ZALEPLON
     Indication: PRODUCT USED FOR UNKNOWN INDICATION
     Dosage: 1 CAPSULE AT BEDTIME AS NEEDED ORALLY ONCE IN A DAY
     Route: 048

REACTIONS (1)
  - Rash [Unknown]
